FAERS Safety Report 17516053 (Version 2)
Quarter: 2020Q1

REPORT INFORMATION
  Report Type: Spontaneous
  Country: DE (occurrence: DE)
  Receive Date: 20200309
  Receipt Date: 20200320
  Transmission Date: 20200409
  Serious: Yes (Other)
  Sender: FDA-Public Use
  Company Number: DE-PFIZER INC-2020097493

PATIENT
  Age: 38 Year
  Sex: Female
  Weight: 70 kg

DRUGS (1)
  1. CYTOTEC [Suspect]
     Active Substance: MISOPROSTOL
     Indication: LABOUR INDUCTION
     Dosage: 75 UG, (9 AM: 25 UG, 1 PM: 50 UG)
     Route: 048
     Dates: start: 20121006, end: 20121006

REACTIONS (7)
  - Product use in unapproved indication [Unknown]
  - Off label use [Unknown]
  - Haemorrhage [Recovering/Resolving]
  - Arrested labour [Recovering/Resolving]
  - Uterine hyperstimulation [Recovering/Resolving]
  - Uterine tachysystole [Recovering/Resolving]
  - Complication of delivery [Recovering/Resolving]

NARRATIVE: CASE EVENT DATE: 20121006
